FAERS Safety Report 16581691 (Version 1)
Quarter: 2019Q3

REPORT INFORMATION
  Report Type: Report from Study
  Country: None (occurrence: IT)
  Receive Date: 20190716
  Receipt Date: 20190716
  Transmission Date: 20191004
  Serious: Yes (Hospitalization)
  Sender: FDA-Public Use
  Company Number: IT-ABBVIE-19K-083-2855420-00

PATIENT
  Age: 73 Year
  Sex: Female

DRUGS (1)
  1. DUODOPA [Suspect]
     Active Substance: CARBIDOPA\LEVODOPA
     Indication: PARKINSON^S DISEASE
     Dosage: MD 2(+3)??CR 3,2??ED 1,2
     Route: 050
     Dates: start: 20180702

REACTIONS (1)
  - Shoulder operation [Recovered/Resolved]

NARRATIVE: CASE EVENT DATE: 20190401
